FAERS Safety Report 14631040 (Version 1)
Quarter: 2018Q1

REPORT INFORMATION
  Report Type: Spontaneous
  Country: AU (occurrence: AU)
  Receive Date: 20180313
  Receipt Date: 20180313
  Transmission Date: 20180509
  Serious: Yes (Other)
  Sender: FDA-Public Use
  Company Number: AU-UCBSA-2018009152

PATIENT
  Sex: Male

DRUGS (5)
  1. KEPPRA [Suspect]
     Active Substance: LEVETIRACETAM
     Indication: PRODUCT USED FOR UNKNOWN INDICATION
     Dosage: UNK
  2. KEPPRA [Suspect]
     Active Substance: LEVETIRACETAM
     Dosage: 500MG (DOSE DECREASED)
     Dates: start: 2015
  3. KEPPRA [Suspect]
     Active Substance: LEVETIRACETAM
     Dosage: 250MG (DOSE DECREASED)
  4. KEPPRA [Suspect]
     Active Substance: LEVETIRACETAM
     Dosage: 1000 MG (DOSE INCREASED)
     Dates: start: 2014
  5. VALIUM [Concomitant]
     Active Substance: DIAZEPAM
     Indication: ANXIETY

REACTIONS (8)
  - Focal dyscognitive seizures [Unknown]
  - Anxiety [Unknown]
  - Aggression [Unknown]
  - Generalised tonic-clonic seizure [Unknown]
  - Change in seizure presentation [Unknown]
  - Petit mal epilepsy [Unknown]
  - Intentional self-injury [Unknown]
  - Suicidal ideation [Unknown]

NARRATIVE: CASE EVENT DATE: 2014
